FAERS Safety Report 6635981-9 (Version None)
Quarter: 2010Q1

REPORT INFORMATION
  Report Type: 
  Country: None (occurrence: None)
  Receive Date: 20100310
  Receipt Date: 20100302
  Transmission Date: 20100710
  Serious: Yes (Life-Threatening)
  Sender: FDA-Public Use
  Company Number: 2010JP000760

PATIENT
  Age: 85 Year
  Sex: Female
  Weight: 54 kg

DRUGS (9)
  1. VESICARE [Suspect]
     Indication: HYPERTONIC BLADDER
     Dosage: 5 MG, UID/QD, ORAL
     Route: 048
     Dates: start: 20091203
  2. DIOVAN [Concomitant]
  3. AMLODIPINE [Concomitant]
  4. PERSANTIN [Concomitant]
  5. MELBURAL (EICOSAPENTAENOIC ACID ETHYL ESTER) [Concomitant]
  6. RABEPRAZOLE SODIUM [Concomitant]
  7. GOSHAJINKIGAN (HERBAL EXTRACT NOS) [Concomitant]
  8. DOXAZOSIN MESYLATE [Concomitant]
  9. ALINAMIN-F (FURSULTIAMINE HYDROCHLORIDE) [Concomitant]

REACTIONS (3)
  - AGRANULOCYTOSIS [None]
  - FEBRILE NEUTROPENIA [None]
  - INFLAMMATION [None]
